FAERS Safety Report 5108157-4 (Version None)
Quarter: 2006Q3

REPORT INFORMATION
  Report Type: 
  Country: None (occurrence: None)
  Receive Date: 20060919
  Receipt Date: 20060911
  Transmission Date: 20061208
  Serious: Yes (Other)
  Sender: FDA-Public Use
  Company Number: FR-GLAXOSMITHKLINE-B0438501A

PATIENT
  Age: 47 Year
  Sex: Female

DRUGS (1)
  1. SUMATRIPTAN SUCCINATE [Suspect]
     Indication: MIGRAINE
     Dosage: 6MG UNKNOWN
     Route: 065

REACTIONS (4)
  - CEREBRAL INFARCTION [None]
  - HEADACHE [None]
  - NEUROLOGICAL SYMPTOM [None]
  - PARADOXICAL DRUG REACTION [None]
